FAERS Safety Report 24837634 (Version 1)
Quarter: 2025Q1

REPORT INFORMATION
  Report Type: Spontaneous
  Country: US (occurrence: None)
  Receive Date: 20250112
  Receipt Date: 20250112
  Transmission Date: 20250409
  Serious: Yes (Life-Threatening, Disabling, Other)
  Sender: FDA-CTU
  Company Number: None

PATIENT
  Age: 45 Year
  Sex: Female

DRUGS (1)
  1. LAMOTRIGINE [Suspect]
     Active Substance: LAMOTRIGINE
     Indication: Bipolar disorder
     Dates: start: 20160504

REACTIONS (3)
  - Autoimmune thyroiditis [None]
  - Systemic inflammatory response syndrome [None]
  - Product communication issue [None]

NARRATIVE: CASE EVENT DATE: 20230501
